FAERS Safety Report 10370790 (Version 1)
Quarter: 2014Q3

REPORT INFORMATION
  Report Type: Spontaneous
  Country: IT (occurrence: IT)
  Receive Date: 20140808
  Receipt Date: 20140808
  Transmission Date: 20150326
  Serious: Yes (Hospitalization)
  Sender: FDA-Public Use
  Company Number: IT-TEVA-498793ISR

PATIENT
  Age: 41 Year
  Sex: Female

DRUGS (3)
  1. DALMADORM - 15 MG CAPSULE RIGIDE - MEDA PHARMA S.P.A . [Suspect]
     Active Substance: FLURAZEPAM\FLURAZEPAM HYDROCHLORIDE
     Indication: INTENTIONAL SELF-INJURY
     Route: 048
     Dates: start: 20130903, end: 20130903
  2. PAROXETINE HYDROCHLORIDE. [Concomitant]
     Active Substance: PAROXETINE HYDROCHLORIDE
     Indication: PRODUCT USED FOR UNKNOWN INDICATION
  3. DIAZEPAM. [Suspect]
     Active Substance: DIAZEPAM
     Indication: INTENTIONAL SELF-INJURY
     Route: 048
     Dates: start: 20130903, end: 20130903

REACTIONS (6)
  - Intentional overdose [None]
  - Drug abuse [Recovering/Resolving]
  - Speech disorder [Recovering/Resolving]
  - Sopor [Recovering/Resolving]
  - Bradyphrenia [Recovering/Resolving]
  - Intentional self-injury [None]

NARRATIVE: CASE EVENT DATE: 20130903
